FAERS Safety Report 25029638 (Version 2)
Quarter: 2025Q2

REPORT INFORMATION
  Report Type: Spontaneous
  Country: JP (occurrence: JP)
  Receive Date: 20250303
  Receipt Date: 20250417
  Transmission Date: 20250717
  Serious: Yes (Life-Threatening, Hospitalization, Other)
  Sender: MERCK SHARP AND DOHME
  Company Number: JP-009507513-2412JPN009046

PATIENT
  Age: 48 Year

DRUGS (5)
  1. SUGAMMADEX SODIUM [Suspect]
     Active Substance: SUGAMMADEX SODIUM
     Indication: Neuromuscular blockade reversal
     Dosage: CONCENTRATION: 200 MG
     Route: 042
     Dates: start: 20241218, end: 20241218
  2. DESFLURANE [Concomitant]
     Active Substance: DESFLURANE
     Indication: Maintenance of anaesthesia
     Route: 055
     Dates: start: 20241218, end: 20241218
  3. PROPOFOL [Concomitant]
     Active Substance: PROPOFOL
     Indication: Induction of anaesthesia
     Route: 042
     Dates: start: 20241218, end: 20241218
  4. TRAMADOL HYDROCHLORIDE [Concomitant]
     Active Substance: TRAMADOL HYDROCHLORIDE
     Indication: Analgesic therapy
     Route: 042
     Dates: start: 20241218, end: 20241218
  5. ROCURONIUM BROMIDE [Concomitant]
     Active Substance: ROCURONIUM BROMIDE
     Indication: Hypotonia
     Route: 042
     Dates: start: 20241218, end: 20241218

REACTIONS (4)
  - Blood pressure decreased [Recovered/Resolved with Sequelae]
  - Cardiomyopathy [Recovered/Resolved with Sequelae]
  - Myocardial ischaemia [Recovered/Resolved with Sequelae]
  - Urticaria [Recovering/Resolving]

NARRATIVE: CASE EVENT DATE: 20241218
